FAERS Safety Report 5778792-9 (Version None)
Quarter: 2008Q2

REPORT INFORMATION
  Report Type: 
  Country: None (occurrence: None)
  Receive Date: 20080619
  Receipt Date: 20080609
  Transmission Date: 20081010
  Serious: Yes (Hospitalization, Other)
  Sender: FDA-Public Use
  Company Number: PHHY2008JP05765

PATIENT
  Sex: Male

DRUGS (8)
  1. NEORAL [Suspect]
     Indication: MYASTHENIA GRAVIS
     Dosage: 300 MG, QD
     Route: 048
  2. PREDNISOLONE [Concomitant]
     Dosage: 10 MG, UNK
     Route: 048
  3. MICARDIS [Concomitant]
     Dosage: 40 MG, UNK
     Route: 048
  4. FAMOTIDINE [Concomitant]
     Dosage: 20 MG, UNK
     Route: 048
  5. ULCERMIN [Concomitant]
     Dosage: 3 G, UNK
     Route: 048
  6. BIOFERMIN [Concomitant]
     Dosage: 3 G, UNK
     Route: 046
  7. SALAZOPYRIN [Concomitant]
     Dosage: 2000 MG, UNK
     Route: 048
  8. MYTELASE [Concomitant]
     Indication: MYASTHENIA GRAVIS
     Dosage: 15 MG
     Route: 048

REACTIONS (3)
  - BONE FORMATION DECREASED [None]
  - FRACTURE [None]
  - SURGERY [None]
